FAERS Safety Report 6807383-3 (Version None)
Quarter: 2010Q2

REPORT INFORMATION
  Report Type: 
  Country: None (occurrence: None)
  Receive Date: 20100629
  Receipt Date: 20081031
  Transmission Date: 20101027
  Serious: No
  Sender: FDA-Public Use
  Company Number: US-PFIZER INC-2008074821

PATIENT
  Sex: Female
  Weight: 74.84 kg

DRUGS (5)
  1. ZYVOX [Suspect]
     Indication: SINUSITIS
     Dates: start: 20080808
  2. METRONIDAZOLE [Concomitant]
  3. ZOFRAN [Concomitant]
  4. DILAUDID [Concomitant]
  5. ATIVAN [Concomitant]

REACTIONS (1)
  - CHILLS [None]
